FAERS Safety Report 20559176 (Version 1)
Quarter: 2022Q1

REPORT INFORMATION
  Report Type: Spontaneous
  Country: IN (occurrence: IN)
  Receive Date: 20220307
  Receipt Date: 20220307
  Transmission Date: 20220423
  Serious: Yes (Hospitalization, Other)
  Sender: FDA-Public Use
  Company Number: IN-NORTHSTAR HEALTHCARE HOLDINGS-IN-2022NSR000025

PATIENT
  Age: 84 Year
  Sex: Male

DRUGS (1)
  1. BACLOFEN [Suspect]
     Active Substance: BACLOFEN
     Indication: Symptomatic treatment
     Dosage: 10 MG, BID
     Route: 065

REACTIONS (2)
  - Neurotoxicity [Recovered/Resolved]
  - Incorrect dose administered [Unknown]
